FAERS Safety Report 12600232 (Version 5)
Quarter: 2017Q3

REPORT INFORMATION
  Report Type: Spontaneous
  Country: ES (occurrence: ES)
  Receive Date: 20160727
  Receipt Date: 20170802
  Transmission Date: 20171127
  Serious: Yes (Hospitalization, Other)
  Sender: FDA-Public Use
  Company Number: ES-GLAXOSMITHKLINE-ES2016GSK106127

PATIENT
  Age: 48 Year
  Sex: Female

DRUGS (6)
  1. FLUTICASONE PROPIONATE+SALMETEROL XINAFOATE [Suspect]
     Active Substance: FLUTICASONE PROPIONATE\SALMETEROL XINAFOATE
     Indication: ASTHMA
     Dosage: 25/250 MCG 2 PUFFS/12 H
     Route: 055
     Dates: start: 201106
  2. ZAFIRLUKAST. [Concomitant]
     Active Substance: ZAFIRLUKAST
     Indication: ASTHMA
     Dosage: 20 MG, BID
     Dates: start: 201106
  3. SALBUTAMOL [Concomitant]
     Active Substance: ALBUTEROL
     Indication: ASTHMA
     Dosage: 100 UG, TID
     Route: 055
     Dates: start: 201106
  4. LAMIVUDINE. [Concomitant]
     Active Substance: LAMIVUDINE
     Indication: HIV INFECTION CDC GROUP III
     Dosage: 300 MG, QD
  5. DARUNAVIR [Concomitant]
     Active Substance: DARUNAVIR
     Indication: HIV INFECTION CDC GROUP III
     Dosage: 800 MG, QD
  6. RITONAVIR. [Interacting]
     Active Substance: RITONAVIR
     Indication: HIV INFECTION CDC GROUP III
     Dosage: 100 MG, QD
     Route: 065

REACTIONS (15)
  - Drug interaction [Unknown]
  - Skin striae [Recovering/Resolving]
  - Cushing^s syndrome [Recovering/Resolving]
  - Gastritis erosive [Recovering/Resolving]
  - Adrenal insufficiency [Recovering/Resolving]
  - Central obesity [Recovering/Resolving]
  - Asthenia [Recovering/Resolving]
  - Cushingoid [Recovering/Resolving]
  - Drug withdrawal syndrome [Unknown]
  - Cortisol decreased [Recovering/Resolving]
  - Upper gastrointestinal haemorrhage [Recovering/Resolving]
  - Hypoglycaemia [Recovering/Resolving]
  - Muscular weakness [Recovering/Resolving]
  - Hypotension [Recovering/Resolving]
  - Hirsutism [Recovering/Resolving]

NARRATIVE: CASE EVENT DATE: 201401
